FAERS Safety Report 18094678 (Version 4)
Quarter: 2020Q4

REPORT INFORMATION
  Report Type: Report from Study
  Country: None (occurrence: CO)
  Receive Date: 20200731
  Receipt Date: 20201009
  Transmission Date: 20210113
  Serious: Yes (Death, Hospitalization, Other)
  Sender: FDA-Public Use
  Company Number: CO-ABBVIE-20K-036-3502572-00

PATIENT
  Age: 81 Year
  Sex: Male
  Weight: 48 kg

DRUGS (8)
  1. ROTIGOTINE [Concomitant]
     Active Substance: ROTIGOTINE
     Indication: PARKINSON^S DISEASE
     Route: 062
  2. RIVASTIGMINE. [Concomitant]
     Active Substance: RIVASTIGMINE
     Indication: SENILE DEMENTIA
     Route: 062
  3. METFORMINE [Concomitant]
     Active Substance: METFORMIN HYDROCHLORIDE
     Indication: TYPE 2 DIABETES MELLITUS
     Route: 048
  4. HUMIRA [Suspect]
     Active Substance: ADALIMUMAB
     Indication: PSORIASIS
     Route: 058
     Dates: end: 20200626
  5. RANITIDINE. [Concomitant]
     Active Substance: RANITIDINE
     Indication: GASTRITIS
     Route: 048
  6. HUMIRA [Suspect]
     Active Substance: ADALIMUMAB
     Indication: PSORIASIS
     Route: 058
     Dates: start: 20140627
  7. RASAGILINE. [Concomitant]
     Active Substance: RASAGILINE
     Indication: PARKINSON^S DISEASE
     Route: 048
  8. QUETIAPINE. [Concomitant]
     Active Substance: QUETIAPINE
     Indication: SENILE DEMENTIA
     Route: 048

REACTIONS (19)
  - Hypoperfusion [Not Recovered/Not Resolved]
  - Bradycardia [Not Recovered/Not Resolved]
  - Asthenia [Not Recovered/Not Resolved]
  - Disorientation [Not Recovered/Not Resolved]
  - Malaise [Not Recovered/Not Resolved]
  - Abdominal distension [Not Recovered/Not Resolved]
  - Tachypnoea [Not Recovered/Not Resolved]
  - Mouth haemorrhage [Not Recovered/Not Resolved]
  - Duodenal ulcer [Not Recovered/Not Resolved]
  - Hypotension [Not Recovered/Not Resolved]
  - Cardio-respiratory arrest [Fatal]
  - Cyanosis [Not Recovered/Not Resolved]
  - Urinary tract infection [Not Recovered/Not Resolved]
  - Hypothermia [Unknown]
  - Duodenal neoplasm [Not Recovered/Not Resolved]
  - Anaemia [Not Recovered/Not Resolved]
  - Hyperhidrosis [Not Recovered/Not Resolved]
  - Mucocutaneous disorder [Not Recovered/Not Resolved]
  - Apnoea [Not Recovered/Not Resolved]

NARRATIVE: CASE EVENT DATE: 20200714
